FAERS Safety Report 9261352 (Version 2)
Quarter: 2013Q2

REPORT INFORMATION
  Report Type: Spontaneous
  Country: AU (occurrence: AU)
  Receive Date: 20130429
  Receipt Date: 20130611
  Transmission Date: 20140414
  Serious: Yes (Hospitalization)
  Sender: FDA-Public Use
  Company Number: AU-B.I. PHARMACEUTICALS,INC./RIDGEFIELD-2013-AU-00487AU

PATIENT
  Age: 81 Year
  Sex: Female
  Weight: 71 kg

DRUGS (4)
  1. PRADAXA [Suspect]
     Indication: ATRIAL FIBRILLATION
     Dosage: 220 MG
     Dates: start: 201108, end: 201211
  2. ATACAND PLUS [Concomitant]
     Dosage: 16/2.5 MG DAILY
  3. SOTACOR [Concomitant]
     Dosage: 1.5 AT NIGHT
  4. SOMAC [Concomitant]

REACTIONS (3)
  - Intestinal polyp [Unknown]
  - Malaise [Recovered/Resolved]
  - Diarrhoea [Recovered/Resolved]
